FAERS Safety Report 17962623 (Version 1)
Quarter: 2020Q2

REPORT INFORMATION
  Report Type: Spontaneous
  Country: GB (occurrence: GB)
  Receive Date: 20200630
  Receipt Date: 20200630
  Transmission Date: 20200714
  Serious: Yes (Hospitalization)
  Sender: FDA-Public Use
  Company Number: GB-STRIDES ARCOLAB LIMITED-2020SP007423

PATIENT
  Age: 17 Year
  Sex: Female

DRUGS (3)
  1. MIDAZOLAM. [Concomitant]
     Active Substance: MIDAZOLAM
     Indication: LIGHT ANAESTHESIA
     Dosage: UNK
     Route: 065
  2. TRIAMCINOLONE ACETONIDE. [Suspect]
     Active Substance: TRIAMCINOLONE ACETONIDE
     Indication: COCCYDYNIA
     Dosage: 1 MILLILITER, SINGLE
  3. BUPIVACAINE. [Suspect]
     Active Substance: BUPIVACAINE
     Indication: LOCAL ANAESTHESIA
     Dosage: 4 MILLILITER, SINGLE

REACTIONS (13)
  - Back pain [Recovered/Resolved]
  - Muscular weakness [Recovered/Resolved]
  - Sensory loss [Recovered/Resolved]
  - Clonus [Recovered/Resolved]
  - Limb discomfort [Recovered/Resolved]
  - Asthenia [Recovered/Resolved]
  - Sensory disturbance [Recovered/Resolved]
  - Conus medullaris syndrome [Unknown]
  - Hypokinesia [Recovered/Resolved]
  - Spinal cord infarction [Unknown]
  - Paraesthesia [Recovered/Resolved]
  - Hypertonia [Recovered/Resolved]
  - Loss of proprioception [Recovered/Resolved]
